FAERS Safety Report 8374755-8 (Version None)
Quarter: 2012Q2

REPORT INFORMATION
  Report Type: 
  Country: None (occurrence: None)
  Receive Date: 20120521
  Receipt Date: 20120508
  Transmission Date: 20120825
  Serious: Yes (Other)
  Sender: FDA-Public Use
  Company Number: US-JNJFOC-20120508786

PATIENT
  Sex: Female

DRUGS (2)
  1. REMICADE [Suspect]
     Indication: PRODUCT USED FOR UNKNOWN INDICATION
     Route: 042
     Dates: start: 20120504
  2. REMICADE [Suspect]
     Route: 042

REACTIONS (5)
  - DIZZINESS [None]
  - PARAESTHESIA [None]
  - PANIC ATTACK [None]
  - ABDOMINAL DISCOMFORT [None]
  - INFUSION RELATED REACTION [None]
